FAERS Safety Report 9626799 (Version 1)
Quarter: 2013Q4

REPORT INFORMATION
  Report Type: Spontaneous
  Country: FR (occurrence: FR)
  Receive Date: 20131016
  Receipt Date: 20131016
  Transmission Date: 20140711
  Serious: Yes (Hospitalization, Other)
  Sender: FDA-Public Use
  Company Number: FR-ASTRAZENECA-2013SE75248

PATIENT
  Age: 624 Month
  Sex: Male

DRUGS (9)
  1. INEXIUM [Suspect]
     Route: 048
     Dates: start: 201301, end: 20130626
  2. NOROXINE [Suspect]
     Route: 048
     Dates: start: 20130504, end: 20130518
  3. PROPRANOLOL [Suspect]
     Route: 048
     Dates: start: 201301, end: 20130625
  4. VANCOMYCIN MYLAN [Suspect]
     Indication: ENDOCARDITIS
     Route: 042
     Dates: start: 20130518, end: 20130618
  5. OCTREOTIDE HOSPIRA [Suspect]
     Route: 042
     Dates: start: 20130619, end: 20130624
  6. B1,B6 VITAMIN [Concomitant]
  7. SPIRONOLACTONE [Concomitant]
     Dates: end: 20130625
  8. LACTULOSE [Concomitant]
     Dates: start: 201304
  9. GUTRON [Concomitant]
     Dates: start: 201304, end: 20130625

REACTIONS (7)
  - Drug reaction with eosinophilia and systemic symptoms [Recovered/Resolved]
  - Respiratory distress [Unknown]
  - Hydrothorax [Unknown]
  - Endocarditis [Unknown]
  - Anaemia [Unknown]
  - Haemoglobin decreased [Unknown]
  - Epstein-Barr viraemia [Unknown]
